FAERS Safety Report 8406991-6 (Version None)
Quarter: 2012Q2

REPORT INFORMATION
  Report Type: 
  Country: None (occurrence: None)
  Receive Date: 20120604
  Receipt Date: 20120531
  Transmission Date: 20120825
  Serious: Yes (Life-Threatening, Other)
  Sender: FDA-Public Use
  Company Number: JP-PFIZER INC-2012072883

PATIENT

DRUGS (1)
  1. GABAPENTIN [Suspect]
     Dosage: UNK
     Route: 048

REACTIONS (1)
  - RESPIRATORY DEPRESSION [None]
